FAERS Safety Report 13121728 (Version 1)
Quarter: 2017Q1

REPORT INFORMATION
  Report Type: Spontaneous
  Country: US (occurrence: US)
  Receive Date: 20170115
  Receipt Date: 20170115
  Transmission Date: 20170428
  Serious: No
  Sender: FDA-Public Use
  Company Number: None

PATIENT
  Age: 43 Year
  Sex: Female
  Weight: 63 kg

DRUGS (7)
  1. BOTULINUM TOXIN [Suspect]
     Active Substance: BOTULINUM TOXIN TYPE A
     Indication: MIGRAINE
     Route: 058
     Dates: start: 20161213
  2. PREMARIN [Concomitant]
     Active Substance: ESTROGENS, CONJUGATED
  3. DEXILANT [Concomitant]
     Active Substance: DEXLANSOPRAZOLE
  4. FRANKINCENSE OIL [Concomitant]
     Active Substance: FRANKINCENSE OIL
  5. NORTRIPTYLINE [Concomitant]
     Active Substance: NORTRIPTYLINE
  6. MAGNESIUM [Concomitant]
     Active Substance: MAGNESIUM
  7. RIBOFLAVIN [Concomitant]
     Active Substance: RIBOFLAVIN

REACTIONS (5)
  - Migraine [None]
  - Muscle tightness [None]
  - Visual impairment [None]
  - Refusal of treatment by patient [None]
  - Muscle spasms [None]

NARRATIVE: CASE EVENT DATE: 20170103
